FAERS Safety Report 8970136 (Version 1)
Quarter: 2012Q4

REPORT INFORMATION
  Report Type: 
  Country: US (occurrence: US)
  Receive Date: 20121218
  Receipt Date: 20121218
  Transmission Date: 20130627
  Serious: No
  Sender: FDA-Public Use
  Company Number: US-ABBOTT-12P-163-0977008-00

PATIENT
  Sex: Female

DRUGS (3)
  1. PROMETRIUM [Suspect]
     Indication: HORMONE REPLACEMENT THERAPY
  2. PROMETRIUM [Suspect]
     Indication: HYSTERECTOMY
  3. CLIMARA [Concomitant]
     Indication: OESTROGEN REPLACEMENT THERAPY

REACTIONS (2)
  - Off label use [Unknown]
  - Hormone replacement therapy [Unknown]
